FAERS Safety Report 8431595-9 (Version None)
Quarter: 2012Q2

REPORT INFORMATION
  Report Type: 
  Country: None (occurrence: None)
  Receive Date: 20120323
  Receipt Date: 20111007
  Transmission Date: 20120825
  Serious: Yes (Other)
  Sender: FDA-Public Use
  Company Number: 163-21880-11063588

PATIENT
  Age: 60 Year
  Sex: Female
  Weight: 60.782 kg

DRUGS (5)
  1. ATARAX [Concomitant]
  2. LOVENOX (HEPARIN-FRACTION, SODIUM SALT) (UNKNOWN) [Concomitant]
  3. REVLIMID [Suspect]
     Indication: MYELOFIBROSIS
     Dosage: 10 MG, DAILY FOR 28 DAYS, PO
     Route: 048
     Dates: start: 20110503, end: 20110627
  4. VICODIN [Concomitant]
  5. ASPIRIN [Concomitant]

REACTIONS (6)
  - FATIGUE [None]
  - RASH [None]
  - VOMITING [None]
  - HAEMATOCRIT DECREASED [None]
  - CONSTIPATION [None]
  - HAEMOGLOBIN DECREASED [None]
